FAERS Safety Report 18968322 (Version 4)
Quarter: 2021Q3

REPORT INFORMATION
  Report Type: Report from Study
  Country: None (occurrence: IL)
  Receive Date: 20210304
  Receipt Date: 20210713
  Transmission Date: 20211014
  Serious: Yes (Other)
  Sender: FDA-Public Use
  Company Number: IL-ABBVIE-20K-082-3628395-00

PATIENT
  Age: 69 Year
  Sex: Female
  Weight: 75 kg

DRUGS (21)
  1. OBINUTUZUMAB. [Suspect]
     Active Substance: OBINUTUZUMAB
     Indication: CHRONIC LYMPHOCYTIC LEUKAEMIA
     Route: 065
     Dates: start: 20200705, end: 20200706
  2. OBINUTUZUMAB. [Suspect]
     Active Substance: OBINUTUZUMAB
     Dosage: CYCLE NUMBER 5
     Route: 065
     Dates: start: 20201025, end: 20201025
  3. PARACETAMOL [Concomitant]
     Active Substance: ACETAMINOPHEN
     Indication: CHEMOTHERAPY SIDE EFFECT PROPHYLAXIS
     Dates: start: 20200705
  4. VENETOCLAX. [Suspect]
     Active Substance: VENETOCLAX
     Dosage: RAMP?UP
     Route: 048
     Dates: start: 20200804, end: 20200812
  5. PROMETHAZINE HCL [Concomitant]
     Active Substance: PROMETHAZINE HYDROCHLORIDE
     Indication: CHEMOTHERAPY SIDE EFFECT PROPHYLAXIS
     Dates: start: 20200705
  6. LORATADINE. [Concomitant]
     Active Substance: LORATADINE
     Indication: CHEMOTHERAPY SIDE EFFECT PROPHYLAXIS
     Dates: start: 20200705
  7. VENETOCLAX. [Suspect]
     Active Substance: VENETOCLAX
     Dosage: RAMP?UP
     Route: 048
     Dates: start: 20200820, end: 20200826
  8. OBINUTUZUMAB. [Suspect]
     Active Substance: OBINUTUZUMAB
     Dosage: CYCLE NUMBER 2
     Route: 065
     Dates: start: 20200809, end: 20200809
  9. ALLOPURINOL. [Concomitant]
     Active Substance: ALLOPURINOL
     Indication: PROPHYLAXIS
     Dates: start: 20200630
  10. IVIGLOB EX [Concomitant]
     Active Substance: HUMAN IMMUNOGLOBULIN G
     Indication: INFECTION
     Dates: start: 20200705
  11. VENETOCLAX. [Suspect]
     Active Substance: VENETOCLAX
     Indication: CHRONIC LYMPHOCYTIC LEUKAEMIA
     Route: 048
     Dates: start: 20200726, end: 20200727
  12. VENETOCLAX. [Suspect]
     Active Substance: VENETOCLAX
     Dosage: RAMP?UP
     Route: 048
     Dates: start: 20200813, end: 20200819
  13. OBINUTUZUMAB. [Suspect]
     Active Substance: OBINUTUZUMAB
     Route: 065
     Dates: start: 20200712, end: 20200712
  14. OBINUTUZUMAB. [Suspect]
     Active Substance: OBINUTUZUMAB
     Dosage: CYCLE NUMBER 7
     Route: 065
     Dates: start: 20201227, end: 20201227
  15. CEFORAL [Concomitant]
     Indication: SKIN INFECTION
     Dates: start: 20200630, end: 20200712
  16. VENETOCLAX. [Suspect]
     Active Substance: VENETOCLAX
     Route: 048
     Dates: start: 20200827, end: 20200902
  17. VENETOCLAX. [Suspect]
     Active Substance: VENETOCLAX
     Route: 048
     Dates: start: 20200903
  18. DEXAMETHASONE. [Concomitant]
     Active Substance: DEXAMETHASONE
     Indication: CHEMOTHERAPY SIDE EFFECT PROPHYLAXIS
     Dates: start: 20200705
  19. OBINUTUZUMAB. [Suspect]
     Active Substance: OBINUTUZUMAB
     Route: 065
     Dates: start: 20200719, end: 20200719
  20. OBINUTUZUMAB. [Suspect]
     Active Substance: OBINUTUZUMAB
     Dosage: CYCLE NUMBER 6
     Route: 065
     Dates: start: 20201129, end: 20201129
  21. SILVEROL [Concomitant]
     Indication: CELLULITIS
     Dates: start: 20200705, end: 20200712

REACTIONS (9)
  - Respiratory tract infection [Recovered/Resolved]
  - Asthenia [Not Recovered/Not Resolved]
  - Neutropenia [Recovered/Resolved]
  - Atrial fibrillation [Not Recovered/Not Resolved]
  - Dyspnoea [Recovered/Resolved]
  - Sleep apnoea syndrome [Recovered/Resolved]
  - Abdominal pain upper [Recovered/Resolved]
  - Respiratory tract infection [Recovered/Resolved]
  - Upper respiratory tract infection [Recovered/Resolved]

NARRATIVE: CASE EVENT DATE: 202007
